FAERS Safety Report 6340666-2 (Version None)
Quarter: 2009Q3

REPORT INFORMATION
  Report Type: 
  Country: None (occurrence: None)
  Receive Date: 20090904
  Receipt Date: 20090831
  Transmission Date: 20100115
  Serious: Yes (Hospitalization)
  Sender: FDA-Public Use
  Company Number: US-AMGEN-KDL278986

PATIENT
  Sex: Female

DRUGS (3)
  1. ENBREL [Suspect]
     Indication: RHEUMATOID ARTHRITIS
     Route: 058
     Dates: start: 20030101, end: 20070101
  2. NAPROSYN [Concomitant]
  3. FLINTSTONES MULTIPLE VITAMINS [Concomitant]

REACTIONS (1)
  - LABOUR INDUCTION [None]
